FAERS Safety Report 7077057-5 (Version None)
Quarter: 2010Q4

REPORT INFORMATION
  Report Type: 
  Country: None (occurrence: None)
  Receive Date: 20101101
  Receipt Date: 20101018
  Transmission Date: 20110411
  Serious: Yes (Hospitalization)
  Sender: FDA-Public Use
  Company Number: US-ROCHE-732529

PATIENT
  Age: 85 Year
  Sex: Female
  Weight: 83.4 kg

DRUGS (2)
  1. BEVACIZUMAB [Suspect]
     Dosage: D1 AND D 15
     Route: 042
     Dates: start: 20070507, end: 20070618
  2. ERLOTINIB HYDROCHLORIDE [Suspect]
     Route: 048
     Dates: start: 20070507, end: 20070626

REACTIONS (12)
  - ANAEMIA [None]
  - BLOOD COUNT ABNORMAL [None]
  - CARDIAC FAILURE CONGESTIVE [None]
  - DEHYDRATION [None]
  - DIARRHOEA [None]
  - FATIGUE [None]
  - HYPERGLYCAEMIA [None]
  - HYPOALBUMINAEMIA [None]
  - HYPOCALCAEMIA [None]
  - HYPOTENSION [None]
  - LEFT VENTRICULAR HYPERTROPHY [None]
  - STAPHYLOCOCCAL SEPSIS [None]
